FAERS Safety Report 19418812 (Version 3)
Quarter: 2021Q3

REPORT INFORMATION
  Report Type: Spontaneous
  Country: BR (occurrence: BR)
  Receive Date: 20210615
  Receipt Date: 20210809
  Transmission Date: 20211014
  Serious: Yes (Death, Hospitalization, Other)
  Sender: FDA-Public Use
  Company Number: BR-ASTRAZENECA-2021A520217

PATIENT
  Age: 858 Month
  Sex: Male

DRUGS (4)
  1. FASENRA [Suspect]
     Active Substance: BENRALIZUMAB
     Route: 058
     Dates: end: 20200920
  2. UNSPECIFIED COVID?19 VACCINE [Concomitant]
     Dates: start: 202105
  3. UNSPECIFIED MEDICINE [Concomitant]
     Indication: DIABETES MELLITUS
  4. UNSPECIFIED MEDICINE [Concomitant]
     Indication: HYPERTENSION

REACTIONS (1)
  - COVID-19 [Fatal]

NARRATIVE: CASE EVENT DATE: 202106
